FAERS Safety Report 12436502 (Version 1)
Quarter: 2016Q2

REPORT INFORMATION
  Report Type: Spontaneous
  Country: US (occurrence: US)
  Receive Date: 20160606
  Receipt Date: 20160606
  Transmission Date: 20160815
  Serious: No
  Sender: FDA-Public Use
  Company Number: US-AUROBINDO-AUR-APU-2015-06222

PATIENT
  Sex: Female

DRUGS (1)
  1. VENLAFAXINE HYDROCHLORIDE EXTENDED-RELEASE CAPSULES 75MG [Suspect]
     Active Substance: VENLAFAXINE HYDROCHLORIDE
     Indication: MENOPAUSE
     Dosage: 75 MG, UNK
     Route: 065

REACTIONS (7)
  - Depressed mood [Unknown]
  - Weight increased [Unknown]
  - Drug ineffective [Unknown]
  - Insomnia [Unknown]
  - Anger [Unknown]
  - Hot flush [Unknown]
  - Micturition urgency [Unknown]
